FAERS Safety Report 7238198-2 (Version None)
Quarter: 2011Q1

REPORT INFORMATION
  Report Type: 
  Country: None (occurrence: None)
  Receive Date: 20110119
  Receipt Date: 20110119
  Transmission Date: 20110831
  Serious: Yes (Hospitalization)
  Sender: FDA-Public Use
  Company Number: None

PATIENT
  Sex: Male
  Weight: 72.5755 kg

DRUGS (2)
  1. PROPOFOL [Suspect]
     Indication: SURGERY
     Dates: start: 20000610, end: 20000810
  2. PROPOFOL [Suspect]
     Indication: SURGERY
     Dates: start: 19970303, end: 19970709

REACTIONS (3)
  - HOMICIDAL IDEATION [None]
  - DEPRESSION [None]
  - SUICIDAL IDEATION [None]
